FAERS Safety Report 7841745-0 (Version None)
Quarter: 2011Q4

REPORT INFORMATION
  Report Type: 
  Country: None (occurrence: None)
  Receive Date: 20111025
  Receipt Date: 20111018
  Transmission Date: 20120403
  Serious: Yes (Hospitalization)
  Sender: FDA-Public Use
  Company Number: US-UCBSA-043736

PATIENT
  Age: 52 Year
  Sex: Female
  Weight: 55 kg

DRUGS (9)
  1. FOSAMAX [Concomitant]
     Dosage: 70X70MG/75ML WEEKLY
     Route: 048
     Dates: start: 19980101
  2. VIMPAT [Suspect]
     Indication: EPILEPSY
     Dosage: 400 MG DAILY
     Route: 048
     Dates: start: 20091004
  3. TRILEPTAL [Concomitant]
     Indication: COMPLEX PARTIAL SEIZURES
     Dosage: DAILY DOSE: 150MG
     Route: 048
     Dates: start: 20110811, end: 20110801
  4. TRILEPTAL [Concomitant]
     Dosage: DAILY DOSE:300MG
     Route: 048
     Dates: start: 20110821
  5. KLONOPIN [Concomitant]
     Indication: EPILEPSY
     Route: 048
     Dates: start: 19920101
  6. OXCARBAZEPINE [Concomitant]
     Indication: CONVULSION
     Dosage: DAILY DOSE: 300MG
     Route: 048
     Dates: start: 20110801, end: 20110801
  7. OXCARBAZEPINE [Concomitant]
     Dosage: DAILY DOSE:150MG
     Route: 048
     Dates: start: 20110805
  8. LAMICTAL [Concomitant]
     Indication: EPILEPSY
     Dates: start: 20030101
  9. DILANTIN [Concomitant]
     Indication: EPILEPSY
     Dates: start: 20110814

REACTIONS (4)
  - ADRENAL CARCINOMA [None]
  - COMPLEX PARTIAL SEIZURES [None]
  - RENAL CANCER [None]
  - THERAPEUTIC RESPONSE UNEXPECTED [None]
